FAERS Safety Report 10104569 (Version 2)
Quarter: 2014Q2

REPORT INFORMATION
  Report Type: Spontaneous
  Country: BR (occurrence: BR)
  Receive Date: 20140424
  Receipt Date: 20140424
  Transmission Date: 20141212
  Serious: Yes (Hospitalization, Other)
  Sender: FDA-Public Use
  Company Number: BR-ABBVIE-14P-020-1226322-00

PATIENT
  Sex: Male

DRUGS (4)
  1. HUMIRA [Suspect]
     Indication: PSORIASIS
     Dates: start: 2010
  2. HUMIRA [Suspect]
  3. METHOTREXATE [Concomitant]
     Indication: PRODUCT USED FOR UNKNOWN INDICATION
     Dates: end: 2012
  4. ISONIAZIDE [Concomitant]
     Indication: PROPHYLAXIS

REACTIONS (10)
  - Migraine [Unknown]
  - Cough [Unknown]
  - Tuberculosis [Unknown]
  - Neurocryptococcosis [Unknown]
  - Bacterial test positive [Unknown]
  - Lung consolidation [Unknown]
  - Respiratory tract infection [Unknown]
  - Systemic inflammatory response syndrome [Unknown]
  - Cough [Unknown]
  - Drug ineffective [Unknown]
